FAERS Safety Report 5203733-2 (Version None)
Quarter: 2007Q1

REPORT INFORMATION
  Report Type: 
  Country: None (occurrence: None)
  Receive Date: 20070108
  Receipt Date: 20070108
  Transmission Date: 20070707
  Serious: Yes (Other)
  Sender: FDA-Public Use
  Company Number: None

PATIENT
  Age: 2 Year
  Sex: Female
  Weight: 13.1543 kg

DRUGS (2)
  1. AMOXICILLIN [Suspect]
     Indication: EAR DISORDER
     Dosage: 4ML 3 TIMES PER DAY PO
     Route: 048
     Dates: start: 20061224, end: 20061230
  2. AMOXICILLIN [Suspect]
     Indication: NASOPHARYNGITIS
     Dosage: 4ML 3 TIMES PER DAY PO
     Route: 048
     Dates: start: 20061224, end: 20061230

REACTIONS (1)
  - URTICARIA [None]
